FAERS Safety Report 7902794-7 (Version None)
Quarter: 2011Q4

REPORT INFORMATION
  Report Type: 
  Country: None (occurrence: None)
  Receive Date: 20111109
  Receipt Date: 20111102
  Transmission Date: 20120403
  Serious: Yes (Hospitalization)
  Sender: FDA-Public Use
  Company Number: US-BIOGENIDEC-2011BI041702

PATIENT
  Age: 63 Year
  Sex: Female

DRUGS (2)
  1. AVONEX [Suspect]
     Indication: MULTIPLE SCLEROSIS
     Route: 030
     Dates: start: 20001026, end: 20010801
  2. AVONEX [Suspect]
     Route: 030
     Dates: start: 20020830

REACTIONS (3)
  - ABASIA [None]
  - PNEUMONIA [None]
  - FALL [None]
